FAERS Safety Report 19600821 (Version 1)
Quarter: 2021Q3

REPORT INFORMATION
  Report Type: Spontaneous
  Country: US (occurrence: US)
  Receive Date: 20210723
  Receipt Date: 20210723
  Transmission Date: 20211014
  Serious: No
  Sender: FDA-Public Use
  Company Number: US-TEVA-2021-US-1934172

PATIENT
  Sex: Male
  Weight: 158.76 kg

DRUGS (1)
  1. ADIPEX?P [Suspect]
     Active Substance: PHENTERMINE HYDROCHLORIDE
     Route: 065

REACTIONS (1)
  - Hernia [Unknown]
